FAERS Safety Report 25460744 (Version 1)
Quarter: 2025Q2

REPORT INFORMATION
  Report Type: Spontaneous
  Country: US (occurrence: None)
  Receive Date: 20250618
  Receipt Date: 20250618
  Transmission Date: 20250717
  Serious: No
  Sender: FDA-CTU
  Company Number: None

PATIENT

DRUGS (1)
  1. BACLOFEN [Suspect]
     Active Substance: BACLOFEN

REACTIONS (4)
  - Anxiety [None]
  - Back pain [None]
  - Depression [None]
  - Bipolar disorder [None]

NARRATIVE: CASE EVENT DATE: 20250617
